FAERS Safety Report 15990739 (Version 1)
Quarter: 2019Q1

REPORT INFORMATION
  Report Type: Spontaneous
  Country: IN (occurrence: IN)
  Receive Date: 20190221
  Receipt Date: 20190221
  Transmission Date: 20190418
  Serious: Yes (Hospitalization)
  Sender: FDA-Public Use
  Company Number: IN-MYLANLABS-2019M1015552

PATIENT
  Age: 45 Year
  Sex: Female

DRUGS (2)
  1. LAPATINIB [Concomitant]
     Active Substance: LAPATINIB
     Indication: BREAST CANCER
     Route: 065
  2. CAPECITABINE. [Suspect]
     Active Substance: CAPECITABINE
     Indication: BREAST CANCER
     Route: 048

REACTIONS (1)
  - Dermatomyositis [Recovering/Resolving]
